FAERS Safety Report 23232396 (Version 3)
Quarter: 2023Q4

REPORT INFORMATION
  Report Type: Report from Study
  Country: US (occurrence: US)
  Receive Date: 20231128
  Receipt Date: 20231207
  Transmission Date: 20240110
  Serious: Yes (Hospitalization, Other)
  Sender: FDA-Public Use
  Company Number: US-JNJFOC-20231156177

PATIENT
  Sex: Male
  Weight: 90.9 kg

DRUGS (5)
  1. EPOPROSTENOL SODIUM [Suspect]
     Active Substance: EPOPROSTENOL SODIUM
     Indication: Pulmonary hypertension
     Route: 042
  2. EPOPROSTENOL SODIUM [Suspect]
     Active Substance: EPOPROSTENOL SODIUM
     Indication: Pulmonary arterial hypertension
  3. REMODULIN [Suspect]
     Active Substance: TREPROSTINIL
     Indication: Product used for unknown indication
     Route: 058
  4. ADEMPAS [Concomitant]
     Active Substance: RIOCIGUAT
  5. ELIQUIS [Concomitant]
     Active Substance: APIXABAN

REACTIONS (4)
  - Device occlusion [Unknown]
  - Therapy change [Unknown]
  - Diarrhoea [Unknown]
  - Underdose [Unknown]
